FAERS Safety Report 21964658 (Version 2)
Quarter: 2023Q1

REPORT INFORMATION
  Report Type: Spontaneous
  Country: US (occurrence: US)
  Receive Date: 20230207
  Receipt Date: 20230209
  Transmission Date: 20230417
  Serious: Yes (Disabling)
  Sender: FDA-Public Use
  Company Number: US-ALLERGAN-2302981US

PATIENT
  Sex: Male
  Weight: 81.633 kg

DRUGS (6)
  1. LEXAPRO [Suspect]
     Active Substance: ESCITALOPRAM OXALATE
     Indication: Product used for unknown indication
     Dosage: ACTUAL:10MG, BUT TOOK 5MG
  2. NARDIL [Suspect]
     Active Substance: PHENELZINE SULFATE
     Indication: Major depression
     Dosage: 1 DF, TID
  3. NARDIL [Suspect]
     Active Substance: PHENELZINE SULFATE
     Indication: Anxiety
     Dosage: 15 MG, BID
  4. BENADRYL [Suspect]
     Active Substance: DIPHENHYDRAMINE HYDROCHLORIDE
     Indication: Product used for unknown indication
     Dosage: 25 MG
  5. EMSAM [Concomitant]
     Active Substance: SELEGILINE
     Indication: Major depression
     Dosage: 25 MG
  6. LEVODOPA [Concomitant]
     Active Substance: LEVODOPA
     Indication: Major depression

REACTIONS (20)
  - Somatic symptom disorder [Unknown]
  - Tachyphrenia [Unknown]
  - Anhedonia [Unknown]
  - Grief reaction [Unknown]
  - Feeling of despair [Unknown]
  - Fear [Unknown]
  - Helplessness [Unknown]
  - Agoraphobia [Unknown]
  - Condition aggravated [Unknown]
  - COVID-19 [Unknown]
  - Oedema peripheral [Unknown]
  - Peripheral venous disease [Unknown]
  - Agitation [Unknown]
  - Anxiety [Unknown]
  - Lethargy [Unknown]
  - Asthenia [Unknown]
  - Fatigue [Unknown]
  - Decreased appetite [Not Recovered/Not Resolved]
  - Restlessness [Unknown]
  - Tremor [Not Recovered/Not Resolved]
